FAERS Safety Report 13612608 (Version 1)
Quarter: 2017Q2

REPORT INFORMATION
  Report Type: Spontaneous
  Country: US (occurrence: SA)
  Receive Date: 20170605
  Receipt Date: 20170605
  Transmission Date: 20170830
  Serious: Yes (Other)
  Sender: FDA-Public Use
  Company Number: US-BAXTER-2017BAX022755

PATIENT
  Age: 11 Year
  Sex: Female

DRUGS (16)
  1. TOPOTECAN [Suspect]
     Active Substance: TOPOTECAN HYDROCHLORIDE
     Dosage: 12 CYCLES
     Route: 065
  2. IFEX [Suspect]
     Active Substance: IFOSFAMIDE
     Indication: OFF LABEL USE
  3. TOPOTECAN [Suspect]
     Active Substance: TOPOTECAN HYDROCHLORIDE
     Indication: NEUROBLASTOMA RECURRENT
     Route: 065
  4. SORAFENIB [Suspect]
     Active Substance: SORAFENIB
     Indication: NEUROBLASTOMA RECURRENT
     Route: 065
  5. CARBOPLATIN. [Concomitant]
     Active Substance: CARBOPLATIN
     Indication: NEUROBLASTOMA RECURRENT
     Route: 065
  6. ETOPOSIDE. [Concomitant]
     Active Substance: ETOPOSIDE
     Dosage: 3 DOSES ICE REGIMEN OVER 3 DAYS
     Route: 065
  7. ENDOXAN VIAL 200 MG [Suspect]
     Active Substance: CYCLOPHOSPHAMIDE
     Dosage: 12 CYCLES
     Route: 065
  8. IFEX [Suspect]
     Active Substance: IFOSFAMIDE
     Indication: NEUROBLASTOMA RECURRENT
     Dosage: OVER 1 HOUR EACH DAY (ICE REGIMEN)
     Route: 065
  9. DOCETAXEL. [Suspect]
     Active Substance: DOCETAXEL
     Indication: NEUROBLASTOMA RECURRENT
     Route: 065
  10. DOXORUBICIN [Concomitant]
     Active Substance: DOXORUBICIN
     Indication: NEUROBLASTOMA
     Route: 065
  11. ENDOXAN VIAL 200 MG [Suspect]
     Active Substance: CYCLOPHOSPHAMIDE
     Indication: NEUROBLASTOMA RECURRENT
     Route: 065
  12. MESNA. [Concomitant]
     Active Substance: MESNA
     Indication: PROPHYLAXIS
     Dosage: RUN CONTINUOUSLY OVER 24 HOURS.
     Route: 041
  13. VINCRISTINE [Concomitant]
     Active Substance: VINCRISTINE
     Indication: NEUROBLASTOMA
     Route: 065
  14. CARBOPLATIN. [Concomitant]
     Active Substance: CARBOPLATIN
     Dosage: ICE REGIMEN
     Route: 065
  15. GEMCITABINE [Suspect]
     Active Substance: GEMCITABINE\GEMCITABINE HYDROCHLORIDE
     Indication: NEUROBLASTOMA RECURRENT
     Route: 065
  16. ETOPOSIDE. [Concomitant]
     Active Substance: ETOPOSIDE
     Indication: NEUROBLASTOMA RECURRENT
     Route: 065

REACTIONS (2)
  - Toxic encephalopathy [Recovered/Resolved]
  - Urinary tract obstruction [Unknown]
